FAERS Safety Report 5245523-0 (Version None)
Quarter: 2007Q1

REPORT INFORMATION
  Report Type: 
  Country: None (occurrence: None)
  Receive Date: 20070223
  Receipt Date: 20070213
  Transmission Date: 20070707
  Serious: Yes (Other)
  Sender: FDA-Public Use
  Company Number: GB-SANOFI-SYNTHELABO-A01200505893

PATIENT
  Age: 82 Year
  Sex: Male

DRUGS (1)
  1. XATRAL XL [Suspect]
     Indication: BENIGN PROSTATIC HYPERPLASIA
     Route: 048
     Dates: start: 20050401

REACTIONS (3)
  - DYSPHAGIA [None]
  - OESOPHAGEAL OBSTRUCTION [None]
  - OESOPHAGEAL STENOSIS [None]
